FAERS Safety Report 8955833 (Version 1)
Quarter: 2012Q4

REPORT INFORMATION
  Report Type: 
  Country: US (occurrence: US)
  Receive Date: 20121210
  Receipt Date: 20121210
  Transmission Date: 20130627
  Serious: No
  Sender: FDA-Public Use
  Company Number: US-PFIZER INC-2012305303

PATIENT
  Age: 60 Year
  Sex: Female
  Weight: 73 kg

DRUGS (5)
  1. AROMASIN [Suspect]
     Indication: BREAST CANCER
     Dosage: 25 mg, 1x/day
     Route: 048
     Dates: start: 2010
  2. AROMASIN [Suspect]
     Dosage: 25 mg, 1x/day
     Route: 048
  3. EXEMESTANE [Suspect]
     Indication: BREAST CANCER
     Dosage: UNK
  4. GABAPENTIN [Concomitant]
     Dosage: UNK
  5. ALENDRONATE SODIUM [Concomitant]
     Indication: BONE DISORDER
     Dosage: 70 mg, once a week

REACTIONS (1)
  - Alopecia [Not Recovered/Not Resolved]
